FAERS Safety Report 24420703 (Version 1)
Quarter: 2024Q4

REPORT INFORMATION
  Report Type: Report from Study
  Country: CA (occurrence: CA)
  Receive Date: 20241010
  Receipt Date: 20241010
  Transmission Date: 20250115
  Serious: Yes (Other)
  Sender: ROCHE
  Company Number: CA-ROCHE-3123539

PATIENT
  Sex: Female

DRUGS (3)
  1. OCREVUS [Suspect]
     Active Substance: OCRELIZUMAB
     Indication: Relapsing-remitting multiple sclerosis
     Dosage: THEN 600 MG EVERY 6 MONTH
     Route: 042
     Dates: start: 20201211
  2. BISOPROLOL [Concomitant]
     Active Substance: BISOPROLOL\BISOPROLOL FUMARATE
  3. LORAZEPAM [Concomitant]
     Active Substance: LORAZEPAM

REACTIONS (16)
  - Bladder cyst [Unknown]
  - Dizziness [Not Recovered/Not Resolved]
  - Heart rate increased [Unknown]
  - Attention deficit hyperactivity disorder [Recovering/Resolving]
  - Tooth disorder [Unknown]
  - Fibromyalgia [Unknown]
  - Depression [Recovering/Resolving]
  - Hypersensitivity [Unknown]
  - Muscle spasms [Unknown]
  - Ovarian disorder [Unknown]
  - Malaise [Unknown]
  - Loss of consciousness [Unknown]
  - Fall [Unknown]
  - COVID-19 [Recovered/Resolved]
  - Urticaria [Not Recovered/Not Resolved]
  - Multiple sclerosis [Unknown]
